FAERS Safety Report 17540388 (Version 1)
Quarter: 2020Q1

REPORT INFORMATION
  Report Type: Spontaneous
  Country: DE (occurrence: DE)
  Receive Date: 20200313
  Receipt Date: 20200313
  Transmission Date: 20200409
  Serious: Yes (Other)
  Sender: FDA-Public Use
  Company Number: DE-PFIZER INC-2020108244

PATIENT
  Sex: Female
  Weight: 87 kg

DRUGS (8)
  1. LEVOCETIRIZINE [Suspect]
     Active Substance: LEVOCETIRIZINE
     Dosage: 4 DF, 1X/DAY (5 MG(2-0-2))
     Route: 065
     Dates: start: 201504
  2. IBUPROFEN. [Suspect]
     Active Substance: IBUPROFEN
     Dosage: 400 MG, AS NEEDED
     Route: 065
  3. XOLAIR [Suspect]
     Active Substance: OMALIZUMAB
     Dosage: 600 MG, UNK (400 MG, EVERY 14 DAYS)
     Route: 058
     Dates: start: 201504
  4. TOPIRAMATE. [Suspect]
     Active Substance: TOPIRAMATE
     Dosage: 50 MG, 2X/DAY
     Route: 065
     Dates: start: 200910
  5. NUVARING [Suspect]
     Active Substance: ETHINYL ESTRADIOL\ETONOGESTREL
     Dosage: UNK
     Route: 065
     Dates: start: 20091001, end: 20191126
  6. FLUTIFORM [Suspect]
     Active Substance: FLUTICASONE PROPIONATE\FORMOTEROL FUMARATE
     Dosage: 4 DF, 1X/DAY (250 MG (2-0-2))
     Route: 065
     Dates: start: 201105
  7. SINGULAIR [Suspect]
     Active Substance: MONTELUKAST SODIUM
     Dosage: 10 MG, 1X/DAY
     Route: 065
     Dates: start: 201610
  8. ZOLMITRIPTAN. [Suspect]
     Active Substance: ZOLMITRIPTAN
     Dosage: UNK UNK, AS NEEDED
     Route: 065
     Dates: start: 201702

REACTIONS (3)
  - Peripheral swelling [Unknown]
  - Thrombosis [Unknown]
  - Musculoskeletal stiffness [Unknown]
